FAERS Safety Report 4873848-7 (Version None)
Quarter: 2006Q1

REPORT INFORMATION
  Report Type: 
  Country: None (occurrence: None)
  Receive Date: 20060104
  Receipt Date: 20051222
  Transmission Date: 20060701
  Serious: Yes (Other)
  Sender: FDA-Public Use
  Company Number: 220459

PATIENT
  Age: 79 Year
  Sex: Female

DRUGS (3)
  1. AVASTIN [Suspect]
     Indication: MACULAR DEGENERATION
     Dosage: 5 MG/KG, INTRAVENOUS
     Route: 042
     Dates: start: 20051208, end: 20051208
  2. COUMADIN [Concomitant]
  3. BENADRYL [Concomitant]

REACTIONS (3)
  - RETINAL DISORDER [None]
  - VISION BLURRED [None]
  - VISUAL ACUITY REDUCED [None]
